FAERS Safety Report 12369177 (Version 17)
Quarter: 2021Q2

REPORT INFORMATION
  Report Type: Spontaneous
  Country: US (occurrence: US)
  Receive Date: 20160513
  Receipt Date: 20210406
  Transmission Date: 20210716
  Serious: Yes (Hospitalization, Other)
  Sender: FDA-Public Use
  Company Number: US-PFIZER INC-2016251521

PATIENT
  Age: 54 Year
  Sex: Male
  Weight: 91 kg

DRUGS (34)
  1. LYRICA [Suspect]
     Active Substance: PREGABALIN
     Dosage: 225 MG, FOUR TIMES A DAY
     Dates: start: 20160301
  2. DIAZEPAM. [Concomitant]
     Active Substance: DIAZEPAM
     Indication: SLEEP DISORDER
     Dosage: 5 MG, ONCE DAILY (AT BEDTIME)
     Dates: start: 20160101
  3. MELOXICAM. [Concomitant]
     Active Substance: MELOXICAM
     Dosage: 15 MG, ONCE DAILY
     Dates: start: 20160505
  4. TIZANIDINE. [Concomitant]
     Active Substance: TIZANIDINE
     Indication: RHABDOMYOLYSIS
     Dosage: 4 MG, THREE TIMES
     Dates: start: 20120101
  5. MELOXICAM. [Concomitant]
     Active Substance: MELOXICAM
     Dosage: 15 MG
     Dates: start: 20160301
  6. CITALOPRAM [Concomitant]
     Active Substance: CITALOPRAM HYDROBROMIDE
     Dosage: UNK
     Dates: start: 20100101
  7. LYRICA [Suspect]
     Active Substance: PREGABALIN
     Indication: SEIZURE
     Dosage: 50 MG
     Dates: start: 20110101
  8. LYRICA [Suspect]
     Active Substance: PREGABALIN
     Dosage: 300 MG, THREE TIMES A DAY
     Dates: start: 20140101
  9. LYRICA [Suspect]
     Active Substance: PREGABALIN
     Dosage: 300 MG, THREE TIMES A DAY
     Dates: start: 2015
  10. LYRICA [Suspect]
     Active Substance: PREGABALIN
     Dosage: 300 MG, THREE TIMES A DAY
  11. DIAZEPAM. [Concomitant]
     Active Substance: DIAZEPAM
     Dosage: 10 MG, ONCE DAILY
  12. LYRICA [Suspect]
     Active Substance: PREGABALIN
     Indication: CEREBROVASCULAR ACCIDENT
     Dosage: 100 MG
  13. LYRICA [Suspect]
     Active Substance: PREGABALIN
     Indication: EPILEPSY
     Dosage: 150 MG
  14. LYRICA [Suspect]
     Active Substance: PREGABALIN
     Dosage: 300 MG
     Dates: start: 20140901
  15. LYRICA [Suspect]
     Active Substance: PREGABALIN
     Dosage: 300 MG, 1 CAPSULE THREE TIMES PER DAY
     Route: 048
  16. TIZANIDINE. [Concomitant]
     Active Substance: TIZANIDINE
     Dosage: 4 MG
     Dates: start: 20151201
  17. KEPPRA [Concomitant]
     Active Substance: LEVETIRACETAM
     Indication: SEIZURE
     Dosage: UNK
     Dates: start: 20110101
  18. LISINOPRIL. [Concomitant]
     Active Substance: LISINOPRIL
     Indication: BLOOD PRESSURE ABNORMAL
     Dosage: 20 MG
     Dates: start: 20080101
  19. KEPPRA [Concomitant]
     Active Substance: LEVETIRACETAM
     Indication: TREMOR
     Dosage: 500 MG
     Dates: start: 20140901
  20. KEPPRA [Concomitant]
     Active Substance: LEVETIRACETAM
     Dosage: 500 MG, TWICE DAILY
     Dates: start: 20150101
  21. MELOXICAM. [Concomitant]
     Active Substance: MELOXICAM
     Indication: PAIN
     Dosage: UNK
     Dates: start: 20150101
  22. LYRICA [Suspect]
     Active Substance: PREGABALIN
     Dosage: 200 MG, THREE TIMES A DAY
     Route: 048
  23. TIZANIDINE. [Concomitant]
     Active Substance: TIZANIDINE
     Indication: MUSCULAR WEAKNESS
     Dosage: 8 MG, THRICE DAILY
     Dates: start: 20150101
  24. LISINOPRIL. [Concomitant]
     Active Substance: LISINOPRIL
     Dosage: 20 MG, ONCE DAILY
     Dates: start: 20120101
  25. CELEXA [Concomitant]
     Active Substance: CITALOPRAM HYDROBROMIDE
     Dosage: UNK
     Dates: start: 20120101
  26. CELEXA [Concomitant]
     Active Substance: CITALOPRAM HYDROBROMIDE
     Dosage: 40 MG, DAILY
     Dates: start: 201601
  27. CITALOPRAM [Concomitant]
     Active Substance: CITALOPRAM HYDROBROMIDE
     Indication: DEPRESSION
     Dosage: 40 MG
     Dates: start: 20080101
  28. LYRICA [Suspect]
     Active Substance: PREGABALIN
     Indication: NEURALGIA
     Dosage: 75 MG
  29. LYRICA [Suspect]
     Active Substance: PREGABALIN
     Dosage: 225 MG, THRICE DAILY
  30. LYRICA [Suspect]
     Active Substance: PREGABALIN
     Dosage: 300 MG, THREE TIMES A DAY
     Dates: end: 201801
  31. IBUPROFEN. [Concomitant]
     Active Substance: IBUPROFEN
     Indication: PAIN
     Dosage: UNK
     Dates: start: 20120101
  32. LISINOPRIL. [Concomitant]
     Active Substance: LISINOPRIL
     Dosage: UNK
     Dates: start: 20100101
  33. DIAZEPAM. [Concomitant]
     Active Substance: DIAZEPAM
     Indication: FEELING OF RELAXATION
     Dosage: UNK
     Dates: start: 20150101
  34. DIAZEPAM. [Concomitant]
     Active Substance: DIAZEPAM
     Indication: BRAIN INJURY
     Dosage: 10 MG, ONCE DAILY (AT NIGHT)
     Dates: start: 20160301

REACTIONS (17)
  - Rhabdomyolysis [Unknown]
  - Expired product administered [Unknown]
  - Weight increased [Recovered/Resolved]
  - Cerebral disorder [Unknown]
  - Hypoacusis [Unknown]
  - Weight decreased [Recovered/Resolved]
  - Intervertebral disc protrusion [Recovered/Resolved]
  - Cellulitis [Recovered/Resolved]
  - Illness [Unknown]
  - Prescribed overdose [Unknown]
  - Hallucinations, mixed [Not Recovered/Not Resolved]
  - Staphylococcal infection [Unknown]
  - Gait disturbance [Unknown]
  - Drug ineffective [Recovering/Resolving]
  - Concussion [Recovered/Resolved]
  - Wound secretion [Unknown]
  - Fall [Recovered/Resolved]

NARRATIVE: CASE EVENT DATE: 20140101
